FAERS Safety Report 4991718-0 (Version None)
Quarter: 2006Q2

REPORT INFORMATION
  Report Type: 
  Country: None (occurrence: None)
  Receive Date: 20060504
  Receipt Date: 20060421
  Transmission Date: 20061013
  Serious: Yes (Other)
  Sender: FDA-Public Use
  Company Number: SE-GLAXOSMITHKLINE-B0421938A

PATIENT
  Age: 77 Year
  Sex: Male

DRUGS (14)
  1. AVANDIA [Suspect]
     Indication: DIABETES MELLITUS
     Dosage: 4MG PER DAY
     Route: 048
     Dates: start: 20050617, end: 20060119
  2. LIPITOR [Concomitant]
  3. COZAAR [Concomitant]
  4. NITROMEX [Concomitant]
  5. INOLAXOL [Concomitant]
  6. ACETAMINOPHEN [Concomitant]
  7. BEHEPAN [Concomitant]
  8. LASIX [Concomitant]
  9. TREO [Concomitant]
  10. TROMBYL [Concomitant]
  11. LANSOPRAZOLE [Concomitant]
  12. SOTALOL HCL [Concomitant]
  13. UNKNOWN [Concomitant]
  14. METFORMIN [Concomitant]

REACTIONS (2)
  - MACULAR DEGENERATION [None]
  - MACULAR OEDEMA [None]
